FAERS Safety Report 8055357-X (Version None)
Quarter: 2012Q1

REPORT INFORMATION
  Report Type: 
  Country: None (occurrence: None)
  Receive Date: 20120119
  Receipt Date: 20120112
  Transmission Date: 20120608
  Serious: Yes (Hospitalization, Other)
  Sender: FDA-Public Use
  Company Number: PHHY2011JP111317

PATIENT
  Age: 56 Year
  Sex: Female

DRUGS (2)
  1. RADIOTHERAPY [Concomitant]
  2. ZOMETA [Suspect]
     Indication: METASTASES TO BONE
     Dosage: UNK UKN, UNK
     Route: 041
     Dates: start: 20080101

REACTIONS (8)
  - OSTEONECROSIS OF JAW [None]
  - DENTAL CARIES [None]
  - PAIN IN JAW [None]
  - NECROSIS [None]
  - BONE FISTULA [None]
  - PERIODONTITIS [None]
  - ORAL CAVITY FISTULA [None]
  - HYPOPHAGIA [None]
